FAERS Safety Report 8456374-8 (Version None)
Quarter: 2012Q2

REPORT INFORMATION
  Report Type: 
  Country: None (occurrence: None)
  Receive Date: 20120621
  Receipt Date: 20120614
  Transmission Date: 20120825
  Serious: Yes (Hospitalization)
  Sender: FDA-Public Use
  Company Number: TW-GLAXOSMITHKLINE-B0809213A

PATIENT
  Age: 82 Year
  Sex: Female

DRUGS (7)
  1. SENOKOT [Concomitant]
     Dosage: 1TAB AT NIGHT
  2. CADUET [Concomitant]
     Dosage: 1TAB PER DAY
  3. ASPIRIN [Concomitant]
     Dosage: 100MG PER DAY
  4. IMDUR [Concomitant]
     Dosage: .5TAB PER DAY
  5. NOVONORM [Suspect]
     Indication: DIABETES MELLITUS
     Dosage: 1MG THREE TIMES PER DAY
     Route: 065
     Dates: start: 20071001, end: 20071016
  6. AVANDIA [Suspect]
     Indication: PRODUCT USED FOR UNKNOWN INDICATION
     Dosage: 4MG PER DAY
     Route: 065
     Dates: start: 20071001, end: 20071118
  7. ACARBOSE [Concomitant]
     Dosage: 25MG THREE TIMES PER DAY

REACTIONS (3)
  - BLOOD PRESSURE SYSTOLIC INCREASED [None]
  - BLOOD GLUCOSE DECREASED [None]
  - LOSS OF CONSCIOUSNESS [None]
